FAERS Safety Report 12984446 (Version 1)
Quarter: 2016Q4

REPORT INFORMATION
  Report Type: Spontaneous
  Country: BR (occurrence: BR)
  Receive Date: 20161129
  Receipt Date: 20161129
  Transmission Date: 20170207
  Serious: Yes (Hospitalization, Disabling, Other)
  Sender: FDA-Public Use
  Company Number: BR-ELI_LILLY_AND_COMPANY-BR201611006960

PATIENT
  Sex: Female
  Weight: 67 kg

DRUGS (5)
  1. CYMBALTA [Suspect]
     Active Substance: DULOXETINE HYDROCHLORIDE
     Indication: FIBROMYALGIA
     Dosage: 60 MG, QD
     Route: 065
  2. LIRICA [Concomitant]
     Active Substance: PREGABALIN
     Indication: SLEEP DISORDER
  3. OXYCONTIN [Concomitant]
     Active Substance: OXYCODONE HYDROCHLORIDE
     Indication: FIBROMYALGIA
     Dosage: 10 MG, BID
     Route: 065
  4. LIRICA [Concomitant]
     Active Substance: PREGABALIN
     Indication: FIBROMYALGIA
     Dosage: 150 MG, BID
     Route: 065
  5. OLCADIL [Concomitant]
     Active Substance: CLOXAZOLAM
     Indication: SLEEP DISORDER
     Dosage: 0.2 MG, EACH EVENING
     Route: 065

REACTIONS (8)
  - Procedural pain [Unknown]
  - Bipolar disorder [Not Recovered/Not Resolved]
  - Sciatic nerve injury [Unknown]
  - Diarrhoea [Recovered/Resolved]
  - Arthralgia [Not Recovered/Not Resolved]
  - Weight decreased [Unknown]
  - Procedural haemorrhage [Unknown]
  - Nervousness [Unknown]

NARRATIVE: CASE EVENT DATE: 2012
